FAERS Safety Report 8516703-3 (Version None)
Quarter: 2012Q3

REPORT INFORMATION
  Report Type: 
  Country: None (occurrence: None)
  Receive Date: 20120718
  Receipt Date: 20120703
  Transmission Date: 20120928
  Serious: No
  Sender: FDA-Public Use
  Company Number: US-009507513-1207USA001592

PATIENT

DRUGS (5)
  1. LISINOPRIL [Concomitant]
     Dosage: 40 MG, UNK
  2. PEG-INTRON [Suspect]
     Dosage: 120 MICROGRAM, UNK
  3. RIBAVIRIN [Suspect]
     Dosage: 200 MG, UNK
     Route: 048
  4. INCIVEK [Suspect]
     Dosage: 375 MG, UNK
     Route: 048
  5. HUMULIN R [Concomitant]
     Dosage: 100 IU, UNK

REACTIONS (1)
  - HAEMORRHOIDS [None]
